FAERS Safety Report 6504692-2 (Version None)
Quarter: 2009Q4

REPORT INFORMATION
  Report Type: 
  Country: None (occurrence: None)
  Receive Date: 20091218
  Receipt Date: 20091207
  Transmission Date: 20100525
  Serious: Yes (Disabling, Other)
  Sender: FDA-Public Use
  Company Number: US-CELGENEUS-163-20785-09101057

PATIENT
  Sex: Female

DRUGS (6)
  1. THALOMID [Suspect]
     Indication: MULTIPLE MYELOMA
     Route: 048
     Dates: start: 20090717, end: 20090801
  2. THALOMID [Suspect]
     Route: 048
     Dates: start: 20090801, end: 20090901
  3. THALOMID [Suspect]
     Route: 048
     Dates: start: 20090901, end: 20091007
  4. DEXAMETHASONE TAB [Concomitant]
     Indication: MULTIPLE MYELOMA
     Route: 065
     Dates: start: 20090701
  5. ARANESP [Concomitant]
     Indication: DRUG USE FOR UNKNOWN INDICATION
     Route: 065
  6. COUMADIN [Concomitant]
     Indication: DRUG USE FOR UNKNOWN INDICATION
     Route: 065
     Dates: start: 20090701

REACTIONS (7)
  - ABDOMINAL DISTENSION [None]
  - BONE PAIN [None]
  - DECREASED APPETITE [None]
  - INSOMNIA [None]
  - NEUROPATHY PERIPHERAL [None]
  - PAIN [None]
  - POLLAKIURIA [None]
